FAERS Safety Report 6016652-9 (Version None)
Quarter: 2008Q4

REPORT INFORMATION
  Report Type: 
  Country: None (occurrence: None)
  Receive Date: 20081222
  Receipt Date: 20081219
  Transmission Date: 20090506
  Serious: Yes (Death, Other)
  Sender: FDA-Public Use
  Company Number: PHHY2008JP31671

PATIENT
  Age: 71 Year
  Sex: Female

DRUGS (3)
  1. GLEEVEC [Suspect]
     Indication: CHRONIC MYELOID LEUKAEMIA
     Dosage: 300 MG /DAILY
     Route: 048
     Dates: start: 20010101
  2. GLEEVEC [Suspect]
     Dosage: 600 MG / DAILY
     Route: 048
     Dates: end: 20070601
  3. GLEEVEC [Suspect]
     Dosage: 200 MG / DAILY
     Route: 048
     Dates: start: 20070701

REACTIONS (15)
  - ANAL ULCER [None]
  - BLAST CRISIS IN MYELOGENOUS LEUKAEMIA [None]
  - CHRONIC MYELOID LEUKAEMIA TRANSFORMATION [None]
  - CONDITION AGGRAVATED [None]
  - CONTUSION [None]
  - ERYTHEMA [None]
  - LIMB INJURY [None]
  - OEDEMA PERIPHERAL [None]
  - PANCYTOPENIA [None]
  - PLATELET COUNT DECREASED [None]
  - PYODERMA GANGRENOSUM [None]
  - SKIN NECROSIS [None]
  - SKIN ULCER [None]
  - TONGUE ULCERATION [None]
  - VAGINAL ULCERATION [None]
